FAERS Safety Report 5529410-6 (Version None)
Quarter: 2007Q4

REPORT INFORMATION
  Report Type: 
  Country: None (occurrence: None)
  Receive Date: 20071129
  Receipt Date: 20071112
  Transmission Date: 20080405
  Serious: No
  Sender: FDA-Public Use
  Company Number: DE-ELI_LILLY_AND_COMPANY-DE200711004524

PATIENT
  Age: 19 Year
  Sex: Male

DRUGS (12)
  1. OLANZAPINE [Suspect]
     Dosage: 15 MG, DAILY (1/D)
     Route: 048
     Dates: start: 20060101
  2. ANAFRANIL [Interacting]
     Dosage: 150 MG, DAILY (1/D)
     Route: 048
     Dates: start: 20070522, end: 20070610
  3. ANAFRANIL [Interacting]
     Dosage: 225 MG, DAILY (1/D)
     Route: 048
     Dates: start: 20070611, end: 20070625
  4. ANAFRANIL [Interacting]
     Dosage: 150 MG, DAILY (1/D)
     Route: 048
     Dates: start: 20070626
  5. ATOSIL [Concomitant]
     Dosage: 150 MG, DAILY (1/D)
     Route: 048
     Dates: start: 20070519
  6. DIAZEPAM [Interacting]
     Dosage: 30 MG, DAILY (1/D)
     Route: 048
     Dates: start: 20070522, end: 20070529
  7. DIAZEPAM [Interacting]
     Dosage: 25 MG, DAILY (1/D)
     Route: 048
     Dates: start: 20070530, end: 20070604
  8. DIAZEPAM [Interacting]
     Dosage: 20 MG, DAILY (1/D)
     Route: 048
     Dates: start: 20070605, end: 20070617
  9. DIAZEPAM [Interacting]
     Dosage: 10 MG, DAILY (1/D)
     Route: 048
     Dates: start: 20070618, end: 20070624
  10. DIAZEPAM [Interacting]
     Dosage: 5 MG, DAILY (1/D)
     Route: 048
     Dates: start: 20070625, end: 20070702
  11. DIAZEPAM [Interacting]
     Dosage: 2.5 MG, DAILY (1/D)
     Route: 048
     Dates: start: 20070703, end: 20070711
  12. ZOPICLON [Concomitant]
     Dosage: 7.5 MG, DAILY (1/D)
     Route: 048
     Dates: start: 20070518, end: 20070604

REACTIONS (3)
  - DRUG INTERACTION [None]
  - HEPATIC ENZYME INCREASED [None]
  - WEIGHT INCREASED [None]
